FAERS Safety Report 5689135-3 (Version None)
Quarter: 2008Q1

REPORT INFORMATION
  Report Type: 
  Country: None (occurrence: None)
  Receive Date: 20080331
  Receipt Date: 19870527
  Transmission Date: 20080703
  Serious: Yes (Death, Life-Threatening, Hospitalization)
  Sender: FDA-Public Use
  Company Number: GB-ROCHE-860400207001

PATIENT
  Age: 23 Year
  Sex: Male
  Weight: 70 kg

DRUGS (14)
  1. INTERFERON ALFA-2A [Suspect]
     Indication: TERATOMA
     Route: 030
     Dates: start: 19860730, end: 19861020
  2. VINCRISTINE [Concomitant]
     Indication: TERATOMA
     Route: 065
     Dates: start: 19860408, end: 19860902
  3. CISPLATIN [Concomitant]
     Indication: TERATOMA
     Route: 065
     Dates: start: 19860408, end: 19860902
  4. DACTINOMYCIN [Concomitant]
     Indication: TERATOMA
     Route: 065
     Dates: start: 19860408, end: 19860902
  5. CYCLOPHOSPHAMIDE [Concomitant]
     Indication: TERATOMA
     Route: 065
     Dates: start: 19860408, end: 19860902
  6. METHOTREXATE [Concomitant]
     Dates: start: 19860408, end: 19860902
  7. BLEOMYCIN [Concomitant]
     Dates: start: 19860408, end: 19860902
  8. ETOPOSIDE [Concomitant]
     Dates: start: 19860408, end: 19860902
  9. FOLINIC ACID [Concomitant]
     Dates: start: 19860408, end: 19860902
  10. LORAZEPAM [Concomitant]
     Dates: start: 19860408, end: 19860902
  11. METOCLOPRAMIDE [Concomitant]
     Dates: start: 19860408, end: 19860902
  12. DEXAMETHASONE TAB [Concomitant]
     Dates: start: 19860408, end: 19860902
  13. CYCLIZINE [Concomitant]
     Dates: start: 19860408, end: 19860902
  14. PROCHLORPERAZINE [Concomitant]
     Dates: start: 19860408, end: 19860902

REACTIONS (4)
  - AORTIC DISORDER [None]
  - AORTIC INJURY [None]
  - DEATH [None]
  - EXSANGUINATION [None]
